FAERS Safety Report 10471976 (Version 2)
Quarter: 2014Q3

REPORT INFORMATION
  Report Type: Spontaneous
  Country: NO (occurrence: NO)
  Receive Date: 20140924
  Receipt Date: 20140924
  Transmission Date: 20150326
  Serious: Yes (Hospitalization)
  Sender: FDA-Public Use
  Company Number: NO-AMGEN-NORSP2014062835

PATIENT
  Age: 69 Year
  Sex: Male

DRUGS (9)
  1. ENZALUTAMIDE [Concomitant]
     Active Substance: ENZALUTAMIDE
     Indication: PROSTATE CANCER
     Dosage: 160 MG, UNK, X1
     Route: 048
     Dates: start: 201403, end: 201407
  2. CALCIGRAN FORTE [Concomitant]
     Indication: METASTASES TO BONE
     Dosage: 1000 MG, UNK, X1
     Route: 048
     Dates: start: 20120713, end: 20140718
  3. ALBYL [Concomitant]
     Dosage: 75 MG, UNK
  4. ZOLADEX [Concomitant]
     Active Substance: GOSERELIN ACETATE
     Indication: PROSTATE CANCER
     Dosage: UNK UNK, Q3MO
     Route: 058
     Dates: start: 2009
  5. PARACETAMOL [Concomitant]
     Active Substance: ACETAMINOPHEN
     Dosage: 500 MG, UNK
  6. OXYCODONE [Concomitant]
     Active Substance: OXYCODONE
     Dosage: UNK UNK, AS NECESSARY
  7. FELODIPIN [Concomitant]
     Active Substance: FELODIPINE
  8. XGEVA [Suspect]
     Active Substance: DENOSUMAB
     Indication: PROSTATE CANCER
     Dosage: 1.7 ML, Q4WK, 120 MG
     Route: 058
     Dates: start: 20120713, end: 20140718
  9. XGEVA [Suspect]
     Active Substance: DENOSUMAB
     Indication: METASTASES TO BONE

REACTIONS (5)
  - Asthenia [Unknown]
  - Fatigue [Unknown]
  - Hypomagnesaemia [Unknown]
  - Pyrexia [Unknown]
  - Hypophosphataemia [Not Recovered/Not Resolved]

NARRATIVE: CASE EVENT DATE: 20140630
